FAERS Safety Report 9452911 (Version 1)
Quarter: 2013Q3

REPORT INFORMATION
  Report Type: Report from Study
  Country: LU (occurrence: LU)
  Receive Date: 20130812
  Receipt Date: 20130812
  Transmission Date: 20140515
  Serious: Yes (Other)
  Sender: FDA-Public Use
  Company Number: LU-CELGENEUS-098-C4047-13081204

PATIENT
  Age: 62 Year
  Sex: Male

DRUGS (5)
  1. CC-4047 [Suspect]
     Indication: PLASMA CELL MYELOMA
     Dosage: 3 MILLIGRAM
     Route: 048
  2. CC-4047 [Suspect]
     Dosage: 3 MILLIGRAM
     Route: 048
  3. DEXAMETHASONE [Concomitant]
     Indication: PLASMA CELL MYELOMA
     Dosage: 20 MILLIGRAM
     Route: 065
  4. BISPHOSPHONATES [Concomitant]
     Indication: PLASMA CELL MYELOMA
     Dosage: NOT PROVIDED
     Route: 065
  5. CARDIOASPIRINE [Concomitant]
     Indication: THROMBOSIS PROPHYLAXIS
     Route: 065

REACTIONS (3)
  - Pancytopenia [Not Recovered/Not Resolved]
  - Creatinine renal clearance decreased [Unknown]
  - Fatigue [Not Recovered/Not Resolved]
